FAERS Safety Report 11499805 (Version 1)
Quarter: 2015Q3

REPORT INFORMATION
  Report Type: Spontaneous
  Country: US (occurrence: US)
  Receive Date: 20150914
  Receipt Date: 20150914
  Transmission Date: 20151125
  Serious: No
  Sender: FDA-Public Use
  Company Number: US-ASTRAZENECA-2015SE84640

PATIENT
  Sex: Male
  Weight: 133.8 kg

DRUGS (3)
  1. SYMLIN [Suspect]
     Active Substance: PRAMLINTIDE ACETATE
     Indication: TYPE 2 DIABETES MELLITUS
     Dosage: 1 MG/2.7 ML, 60 UG, BEFORE MEALS
     Route: 058
     Dates: start: 20150831
  2. LANTUS [Concomitant]
     Active Substance: INSULIN GLARGINE
     Indication: TYPE 2 DIABETES MELLITUS
     Route: 058
     Dates: end: 20150831
  3. NOVOLOG [Concomitant]
     Active Substance: INSULIN ASPART
     Indication: TYPE 2 DIABETES MELLITUS
     Dosage: 21 UNIT IN THE MORNING, 10 UNITS IN THE AFTERNOON AND 16 OR 17 UNITS IN THE EVENING
     Route: 058

REACTIONS (2)
  - Blood glucose decreased [Unknown]
  - Drug dose omission [Unknown]
